FAERS Safety Report 25120862 (Version 1)
Quarter: 2025Q1

REPORT INFORMATION
  Report Type: Report from Study
  Country: CA (occurrence: CA)
  Receive Date: 20250325
  Receipt Date: 20250325
  Transmission Date: 20250409
  Serious: Yes (Hospitalization)
  Sender: ABBVIE
  Company Number: CA-ABBVIE-6185273

PATIENT
  Age: 44 Year
  Sex: Female

DRUGS (1)
  1. SKYRIZI [Suspect]
     Active Substance: RISANKIZUMAB-RZAA
     Indication: Crohn^s disease
     Route: 058

REACTIONS (8)
  - Labyrinthitis [Unknown]
  - Crohn^s disease [Unknown]
  - Pyrexia [Unknown]
  - Influenza [Unknown]
  - Vomiting [Unknown]
  - Gait inability [Unknown]
  - Device issue [Unknown]
  - Nystagmus [Unknown]

NARRATIVE: CASE EVENT DATE: 20250101
